FAERS Safety Report 21913392 (Version 1)
Quarter: 2023Q1

REPORT INFORMATION
  Report Type: Spontaneous
  Country: US (occurrence: US)
  Receive Date: 20230125
  Receipt Date: 20230125
  Transmission Date: 20230417
  Serious: No
  Sender: FDA-Public Use
  Company Number: US-ALLERGAN-2237375US

PATIENT
  Sex: Female

DRUGS (1)
  1. BOTOX [Suspect]
     Active Substance: ONABOTULINUMTOXINA
     Indication: Product used for unknown indication
     Dosage: UNK, SINGLE
     Dates: start: 2022, end: 2022

REACTIONS (5)
  - Arthritis [Unknown]
  - Fibromyalgia [Unknown]
  - Amnesia [Unknown]
  - Influenza [Unknown]
  - Migraine [Unknown]

NARRATIVE: CASE EVENT DATE: 20220101
